FAERS Safety Report 5822291-2 (Version None)
Quarter: 2008Q3

REPORT INFORMATION
  Report Type: 
  Country: None (occurrence: None)
  Receive Date: 20080725
  Receipt Date: 20080424
  Transmission Date: 20090109
  Serious: No
  Sender: FDA-Public Use
  Company Number: US-AMGEN-KDL276337

PATIENT
  Sex: Female
  Weight: 56.8 kg

DRUGS (6)
  1. PROCRIT [Suspect]
     Indication: ANAEMIA
     Dates: start: 20080410
  2. UNSPECIFIED VITAMINS [Concomitant]
  3. ASPIRIN [Concomitant]
  4. BONIVA [Concomitant]
  5. NEXIUM [Concomitant]
  6. UNSPECIFIED MEDICATION [Concomitant]

REACTIONS (1)
  - OEDEMA PERIPHERAL [None]
